FAERS Safety Report 10678640 (Version 1)
Quarter: 2014Q4

REPORT INFORMATION
  Report Type: Spontaneous
  Country: US (occurrence: None)
  Receive Date: 20141223
  Receipt Date: 20141223
  Transmission Date: 20150529
  Serious: Yes (Other)
  Sender: FDA-Public Use
  Company Number: US-001541

PATIENT
  Sex: Female

DRUGS (3)
  1. BENZONATATE. [Concomitant]
     Active Substance: BENZONATATE
  2. SOLUTIONS FOR PARENTERAL NUTRITION [Concomitant]
     Active Substance: AMINO ACIDS\DEXTROSE\ELECTROLYTES NOS
  3. GATTEX [Suspect]
     Active Substance: TEDUGLUTIDE\WATER
     Indication: SHORT-BOWEL SYNDROME
     Route: 058
     Dates: start: 20140204

REACTIONS (8)
  - Diarrhoea [None]
  - Weight fluctuation [None]
  - Cough [None]
  - Chest pain [None]
  - Pulmonary mass [None]
  - Dysuria [None]
  - Condition aggravated [None]
  - Micturition urgency [None]

NARRATIVE: CASE EVENT DATE: 2014
